FAERS Safety Report 7206883-4 (Version None)
Quarter: 2010Q4

REPORT INFORMATION
  Report Type: 
  Country: None (occurrence: None)
  Receive Date: 20101221
  Receipt Date: 20101209
  Transmission Date: 20110411
  Serious: Yes (Other)
  Sender: FDA-Public Use
  Company Number: TRP_07449_2010

PATIENT

DRUGS (8)
  1. RIBASPHERE [Suspect]
     Indication: HEPATITIS C
     Dosage: 1000-1200 MG/DAY, ORAL; 1000-1200 MG/DAY,ORAL
     Route: 048
  2. RIBASPHERE [Suspect]
     Indication: HEPATITIS C
     Dosage: 1000-1200 MG/DAY, ORAL; 1000-1200 MG/DAY,ORAL
     Route: 048
  3. INFERGEN [Suspect]
     Indication: HEPATITIS C
     Dosage: 15 UG, 3X/WEEK SUBCUTANEOUS
     Route: 058
  4. INFERGEN [Suspect]
     Indication: HEPATITIS C
     Dosage: 15 UG, 3X/WEEK SUBCUTANEOUS
     Route: 058
  5. PEG-INTRON [Suspect]
     Indication: HEPATITIS C
     Dosage: 1.5 ?/KG 1X/WEEK SUBCUTANOUES; 1.5 ?G/KG 1X/WEEK SUBCUTANEOUS
     Route: 058
  6. PEG-INTRON [Suspect]
     Indication: HEPATITIS C
     Dosage: 1.5 ?/KG 1X/WEEK SUBCUTANOUES; 1.5 ?G/KG 1X/WEEK SUBCUTANEOUS
     Route: 058
  7. REBETOL [Suspect]
     Indication: HEPATITIS C
     Dosage: 1000-1200 MG/DAY ORAL; 1000-1200 MG/DAY ORAL
     Route: 048
  8. REBETOL [Suspect]
     Indication: HEPATITIS C
     Dosage: 1000-1200 MG/DAY ORAL; 1000-1200 MG/DAY ORAL
     Route: 048

REACTIONS (13)
  - ALCOHOL ABUSE [None]
  - ANAEMIA [None]
  - CELLULITIS [None]
  - CONVULSION [None]
  - DEPRESSION [None]
  - EMOTIONAL DISORDER [None]
  - HEADACHE [None]
  - INFLUENZA LIKE ILLNESS [None]
  - MOOD ALTERED [None]
  - NEUTROPENIA [None]
  - PSYCHOTIC DISORDER [None]
  - PYELONEPHRITIS [None]
  - THROMBOCYTOPENIA [None]
